FAERS Safety Report 17352174 (Version 1)
Quarter: 2020Q1

REPORT INFORMATION
  Report Type: Spontaneous
  Country: TW (occurrence: TW)
  Receive Date: 20200130
  Receipt Date: 20200130
  Transmission Date: 20200409
  Serious: Yes (Other)
  Sender: FDA-Public Use
  Company Number: TW-BAUSCH-BL-2020-001617

PATIENT
  Age: 80 Year
  Sex: Male

DRUGS (1)
  1. PREDNISOLONE. [Suspect]
     Active Substance: PREDNISOLONE
     Indication: DERMATITIS CONTACT
     Dosage: LONG TERM PRESCRIPTION
     Route: 065

REACTIONS (2)
  - Mycobacterial infection [Recovered/Resolved]
  - Jarisch-Herxheimer reaction [Recovered/Resolved]
